FAERS Safety Report 9844793 (Version 3)
Quarter: 2014Q2

REPORT INFORMATION
  Report Type: Report from Study
  Country: CA (occurrence: CA)
  Receive Date: 20140127
  Receipt Date: 20140404
  Transmission Date: 20141212
  Serious: Yes (Other)
  Sender: FDA-Public Use
  Company Number: CA-ROCHE-1334905

PATIENT
  Sex: Female
  Weight: 82.1 kg

DRUGS (15)
  1. RITUXAN [Suspect]
     Indication: RHEUMATOID ARTHRITIS
     Dosage: DAY 1 AND DAY 15.
     Route: 042
     Dates: start: 20131202, end: 20131216
  2. ANASTROZOLE [Suspect]
     Indication: PRODUCT USED FOR UNKNOWN INDICATION
     Route: 065
  3. DIPHENHYDRAMINE HCL [Concomitant]
     Route: 048
     Dates: start: 20131202
  4. ACETAMINOPHEN [Concomitant]
     Route: 048
     Dates: start: 20131202
  5. METHYLPREDNISOLONE [Concomitant]
     Route: 042
     Dates: start: 20131202
  6. ARAVA [Concomitant]
  7. PREDNISONE [Concomitant]
  8. HYDROCHLOROTHIAZIDE/IRBESARTAN [Concomitant]
  9. SPIRIVA [Concomitant]
  10. DERMOVATE [Concomitant]
  11. ANASTROZOLE [Concomitant]
  12. LANSOPRAZOLE [Concomitant]
  13. RISEDRONATE [Concomitant]
  14. NASONEX [Concomitant]
  15. PROCHLORPERAZINE [Concomitant]

REACTIONS (11)
  - Supraventricular extrasystoles [Not Recovered/Not Resolved]
  - Ventricular extrasystoles [Not Recovered/Not Resolved]
  - Dysgeusia [Not Recovered/Not Resolved]
  - Myalgia [Not Recovered/Not Resolved]
  - Red blood cell sedimentation rate increased [Unknown]
  - Dysgeusia [Not Recovered/Not Resolved]
  - Fatigue [Not Recovered/Not Resolved]
  - Asthenia [Not Recovered/Not Resolved]
  - Palpitations [Not Recovered/Not Resolved]
  - Headache [Not Recovered/Not Resolved]
  - Nausea [Not Recovered/Not Resolved]
